FAERS Safety Report 17509402 (Version 2)
Quarter: 2020Q1

REPORT INFORMATION
  Report Type: Spontaneous
  Country: US (occurrence: US)
  Receive Date: 20200306
  Receipt Date: 20200312
  Transmission Date: 20200409
  Serious: Yes (Hospitalization, Other)
  Sender: FDA-Public Use
  Company Number: US-ABBVIE-20K-163-3302600-00

PATIENT
  Age: 45 Year
  Sex: Female

DRUGS (2)
  1. ADALIMUMAB [Suspect]
     Active Substance: ADALIMUMAB
     Indication: CROHN^S DISEASE
     Route: 058
  2. SOLU-MEDROL [Suspect]
     Active Substance: METHYLPREDNISOLONE SODIUM SUCCINATE
     Indication: DIARRHOEA
     Route: 042

REACTIONS (8)
  - Autoimmune disorder [Unknown]
  - Inappropriate antidiuretic hormone secretion [Recovered/Resolved]
  - Pelvic mass [Unknown]
  - Abdominal adhesions [Unknown]
  - Leukoencephalopathy [Unknown]
  - Small intestinal obstruction [Recovered/Resolved]
  - Hypovolaemic shock [Recovering/Resolving]
  - Gastrointestinal inflammation [Recovering/Resolving]
